FAERS Safety Report 6180212-X (Version None)
Quarter: 2009Q2

REPORT INFORMATION
  Report Type: 
  Country: None (occurrence: None)
  Receive Date: 20090501
  Receipt Date: 20090420
  Transmission Date: 20091009
  Serious: Yes (Other)
  Sender: FDA-Public Use
  Company Number: 2009AP001611

PATIENT
  Age: 65 Year
  Sex: Female

DRUGS (2)
  1. AMLODIPINE BESYLATE [Suspect]
     Indication: HYPERTENSION
     Dosage: 5 MG, QD; 10 MG, QD
     Dates: end: 20080501
  2. AMLODIPINE BESYLATE [Suspect]
     Indication: HYPERTENSION
     Dosage: 5 MG, QD; 10 MG, QD
     Dates: start: 20080501

REACTIONS (3)
  - DIABETES MELLITUS [None]
  - VISION BLURRED [None]
  - VISUAL IMPAIRMENT [None]
